FAERS Safety Report 10712788 (Version 1)
Quarter: 2015Q1

REPORT INFORMATION
  Report Type: Spontaneous
  Country: IT (occurrence: None)
  Receive Date: 20150113
  Receipt Date: 20150113
  Transmission Date: 20150721
  Serious: Yes (Other)
  Sender: FDA-Public Use
  Company Number: 2015-000010

PATIENT

DRUGS (1)
  1. MESALAZINE (MESALAZINE) [Suspect]
     Active Substance: MESALAMINE
     Indication: IRRITABLE BOWEL SYNDROME
     Route: 048

REACTIONS (9)
  - Headache [None]
  - Flatulence [None]
  - Off label use [None]
  - Diarrhoea [None]
  - Vomiting [None]
  - Breast cancer recurrent [None]
  - Gastroenteritis [None]
  - Upper respiratory tract infection [None]
  - Colitis ischaemic [None]
